FAERS Safety Report 11791836 (Version 2)
Quarter: 2015Q4

REPORT INFORMATION
  Report Type: Spontaneous
  Country: US (occurrence: US)
  Receive Date: 20151201
  Receipt Date: 20151223
  Transmission Date: 20160305
  Serious: Yes (Hospitalization, Other)
  Sender: FDA-Public Use
  Company Number: GXBR2015US002663

PATIENT
  Age: 68 Year
  Sex: Female

DRUGS (17)
  1. CYTOXAN [Suspect]
     Active Substance: CYCLOPHOSPHAMIDE
     Indication: PROPHYLAXIS AGAINST TRANSPLANT REJECTION
     Dosage: UNK DF, UNK
     Route: 065
     Dates: start: 20150929
  2. CHOLECALCIFEROL [Concomitant]
     Active Substance: CHOLECALCIFEROL
     Indication: PRODUCT USED FOR UNKNOWN INDICATION
     Dosage: 6000 IU, QD
     Route: 048
  3. FLUCONAZOLE. [Concomitant]
     Active Substance: FLUCONAZOLE
     Indication: INFECTION PROPHYLAXIS
     Dosage: UNK DF, UNK
  4. MYCOPHENOLATE MOFETIL. [Suspect]
     Active Substance: MYCOPHENOLATE MOFETIL
     Dosage: 1 G, Q8H
     Route: 048
     Dates: start: 20151020, end: 20151119
  5. VITAMIN B12 [Concomitant]
     Active Substance: CYANOCOBALAMIN
     Indication: PRODUCT USED FOR UNKNOWN INDICATION
     Dosage: 100 UG, QD
     Route: 048
  6. FLUDARABINE [Suspect]
     Active Substance: FLUDARABINE PHOSPHATE
     Indication: BONE MARROW CONDITIONING REGIMEN
     Dosage: UNK DF, UNK
     Route: 065
     Dates: start: 20150929
  7. CYTOXAN [Suspect]
     Active Substance: CYCLOPHOSPHAMIDE
     Indication: PROPHYLAXIS AGAINST GRAFT VERSUS HOST DISEASE
  8. TACROLIMUS. [Suspect]
     Active Substance: TACROLIMUS
     Dosage: 4 MG, Q12H
     Route: 048
     Dates: start: 20151020
  9. MAGNESIUM SULFATE ^BIOTIKA^ [Concomitant]
     Indication: HYPOMAGNESAEMIA
     Dosage: 6 G, ONCE/SINGLE
     Route: 042
     Dates: start: 20151106, end: 20151106
  10. ACYCLOVIR. [Concomitant]
     Active Substance: ACYCLOVIR
     Indication: INFECTION PROPHYLAXIS
     Dosage: 400 MG, Q12H
     Route: 048
     Dates: start: 20151020, end: 20151119
  11. MULTI VITAMIN [Concomitant]
     Active Substance: VITAMINS
     Indication: PRODUCT USED FOR UNKNOWN INDICATION
     Dosage: 1 DF, QD
     Route: 048
  12. TACROLIMUS. [Suspect]
     Active Substance: TACROLIMUS
     Indication: PROPHYLAXIS AGAINST GRAFT VERSUS HOST DISEASE
     Dosage: 4 CAPSULES Q12H
     Route: 048
     Dates: start: 20151020
  13. ATENOLOL. [Concomitant]
     Active Substance: ATENOLOL
     Indication: HYPERTENSION
     Dosage: 50 MG, QD
     Route: 048
  14. ASPIRIN. [Concomitant]
     Active Substance: ASPIRIN
     Indication: PRODUCT USED FOR UNKNOWN INDICATION
     Dosage: 81 MG, QD
     Route: 048
  15. URSODIOL. [Concomitant]
     Active Substance: URSODIOL
     Indication: PRODUCT USED FOR UNKNOWN INDICATION
     Dosage: 300 MG, Q8H
     Route: 048
     Dates: start: 20151020, end: 20151119
  16. MYCOPHENOLATE MOFETIL. [Suspect]
     Active Substance: MYCOPHENOLATE MOFETIL
     Indication: PROPHYLAXIS AGAINST GRAFT VERSUS HOST DISEASE
     Dosage: 1000 MG, Q8H
     Route: 065
     Dates: start: 20151020, end: 20151119
  17. PANTOPRAZOLE [Concomitant]
     Active Substance: PANTOPRAZOLE SODIUM
     Indication: PRODUCT USED FOR UNKNOWN INDICATION
     Dosage: 20 MG, QD
     Route: 048
     Dates: start: 20151020

REACTIONS (8)
  - Hypomagnesaemia [Unknown]
  - Rash [Not Recovered/Not Resolved]
  - Graft versus host disease [Unknown]
  - General physical health deterioration [Unknown]
  - Diarrhoea [Recovered/Resolved]
  - Pruritus [Recovering/Resolving]
  - Febrile neutropenia [Recovered/Resolved]
  - Constipation [Recovered/Resolved]

NARRATIVE: CASE EVENT DATE: 20151020
